FAERS Safety Report 15969489 (Version 1)
Quarter: 2019Q1

REPORT INFORMATION
  Report Type: Spontaneous
  Country: US (occurrence: US)
  Receive Date: 20190215
  Receipt Date: 20190215
  Transmission Date: 20190418
  Serious: Yes (Other)
  Sender: FDA-Public Use
  Company Number: US-PFIZER INC-2019069832

PATIENT
  Age: 57 Year
  Sex: Male
  Weight: 75.28 kg

DRUGS (3)
  1. GEODON [Suspect]
     Active Substance: ZIPRASIDONE HYDROCHLORIDE\ZIPRASIDONE MESYLATE
     Indication: HALLUCINATION
  2. GEODON [Suspect]
     Active Substance: ZIPRASIDONE HYDROCHLORIDE\ZIPRASIDONE MESYLATE
     Indication: PARANOIA
  3. GEODON [Suspect]
     Active Substance: ZIPRASIDONE HYDROCHLORIDE\ZIPRASIDONE MESYLATE
     Indication: DEREALISATION
     Dosage: UNK, [2-3 TIMES PER DAY]
     Route: 048

REACTIONS (4)
  - Paranoia [Not Recovered/Not Resolved]
  - Derealisation [Not Recovered/Not Resolved]
  - Condition aggravated [Unknown]
  - Hallucination [Not Recovered/Not Resolved]
